FAERS Safety Report 12798769 (Version 1)
Quarter: 2016Q3

REPORT INFORMATION
  Report Type: Spontaneous
  Country: US (occurrence: US)
  Receive Date: 20160930
  Receipt Date: 20160930
  Transmission Date: 20161109
  Serious: No
  Sender: FDA-Public Use
  Company Number: US-BAYER-2016-189486

PATIENT
  Sex: Female
  Weight: 19.48 kg

DRUGS (1)
  1. CHILDREN CLARITIN ALLERGY [Suspect]
     Active Substance: LORATADINE
     Dosage: 1 DF, UNK
     Route: 048
     Dates: end: 20160928

REACTIONS (1)
  - Expired product administered [Unknown]
